FAERS Safety Report 17186507 (Version 1)
Quarter: 2019Q4

REPORT INFORMATION
  Report Type: Spontaneous
  Country: US (occurrence: US)
  Receive Date: 20191220
  Receipt Date: 20191220
  Transmission Date: 20200122
  Serious: No
  Sender: FDA-Public Use
  Company Number: US-ETHYPHARM-201902410

PATIENT
  Sex: Male

DRUGS (1)
  1. BUPRENORPHINE. [Suspect]
     Active Substance: BUPRENORPHINE
     Indication: PRODUCT USED FOR UNKNOWN INDICATION
     Dosage: 4 MG IN THE AM AND 4 MG IN THE PM
     Route: 060

REACTIONS (2)
  - Gastroenteritis viral [Recovered/Resolved]
  - Intentional product misuse [Unknown]
